FAERS Safety Report 6343378-4 (Version None)
Quarter: 2009Q3

REPORT INFORMATION
  Report Type: 
  Country: None (occurrence: None)
  Receive Date: 20090908
  Receipt Date: 20090831
  Transmission Date: 20100115
  Serious: Yes (Other)
  Sender: FDA-Public Use
  Company Number: PHHY2009FR37303

PATIENT
  Sex: Female

DRUGS (3)
  1. PARLODEL [Suspect]
     Dosage: 10 MG, TID
     Dates: start: 20050501, end: 20080101
  2. STALEVO 100 [Suspect]
     Dosage: 1 DF, TID
     Dates: start: 20050901, end: 20080101
  3. MADOPAR [Suspect]
     Dosage: 1 DF, TID

REACTIONS (4)
  - HYPERSEXUALITY [None]
  - RESTLESSNESS [None]
  - SOMNOLENCE [None]
  - SUDDEN ONSET OF SLEEP [None]
